FAERS Safety Report 15111530 (Version 1)
Quarter: 2018Q3

REPORT INFORMATION
  Report Type: Spontaneous
  Country: JP (occurrence: JP)
  Receive Date: 20180705
  Receipt Date: 20180705
  Transmission Date: 20181010
  Serious: Yes (Hospitalization)
  Sender: FDA-Public Use
  Company Number: JP-BAYER-2018-122991

PATIENT
  Age: 78 Year
  Sex: Male

DRUGS (1)
  1. NEXAVAR [Suspect]
     Active Substance: SORAFENIB
     Indication: RENAL CELL CARCINOMA
     Route: 048

REACTIONS (2)
  - Vasodilatation [None]
  - Large intestinal haemorrhage [None]

NARRATIVE: CASE EVENT DATE: 20180621
